FAERS Safety Report 10917630 (Version 1)
Quarter: 2015Q1

REPORT INFORMATION
  Report Type: Spontaneous
  Country: US (occurrence: None)
  Receive Date: 20150309
  Receipt Date: 20150309
  Transmission Date: 20150721
  Serious: No
  Sender: FDA-Public Use
  Company Number: 13MRZ-00248

PATIENT
  Age: 82 Year
  Sex: Female
  Weight: 86.18 kg

DRUGS (5)
  1. ALUVEA [Suspect]
     Active Substance: UREA
     Indication: ERYTHEMA
     Dosage: TOPICAL APPLICATION DAILY
     Route: 061
     Dates: start: 20131202
  2. NAFTIN [Suspect]
     Active Substance: NAFTIFINE HYDROCHLORIDE
     Indication: BURNING SENSATION
     Route: 061
     Dates: start: 20131202
  3. XANAX [Concomitant]
     Active Substance: ALPRAZOLAM
  4. PREDNISONE. [Concomitant]
     Active Substance: PREDNISONE
  5. TRAMADOL [Concomitant]
     Active Substance: TRAMADOL

REACTIONS (1)
  - Diarrhoea [None]

NARRATIVE: CASE EVENT DATE: 20131202
